FAERS Safety Report 24392047 (Version 1)
Quarter: 2024Q4

REPORT INFORMATION
  Report Type: Spontaneous
  Country: CN (occurrence: CN)
  Receive Date: 20241003
  Receipt Date: 20241003
  Transmission Date: 20250115
  Serious: Yes (Other)
  Sender: GE HEALTHCARE
  Company Number: CN-GE HEALTHCARE-2024CSU010929

PATIENT
  Age: 79 Year
  Sex: Male
  Weight: 90 kg

DRUGS (1)
  1. VISIPAQUE [Suspect]
     Active Substance: IODIXANOL
     Indication: Angiogram cerebral
     Dosage: 120 ML, TOTAL
     Route: 013
     Dates: start: 20240920, end: 20240920

REACTIONS (5)
  - Dysphoria [Recovering/Resolving]
  - Disorganised speech [Recovering/Resolving]
  - Contrast encephalopathy [Recovering/Resolving]
  - Psychomotor hyperactivity [Recovering/Resolving]
  - Dyskinesia [Recovering/Resolving]

NARRATIVE: CASE EVENT DATE: 20240920
